FAERS Safety Report 7967317-5 (Version None)
Quarter: 2011Q4

REPORT INFORMATION
  Report Type: 
  Country: None (occurrence: None)
  Receive Date: 20111209
  Receipt Date: 20111202
  Transmission Date: 20120403
  Serious: Yes (Life-Threatening, Hospitalization, Disabling)
  Sender: FDA-Public Use
  Company Number: GB-CELGENEUS-167-C5013-11101134

PATIENT
  Sex: Female
  Weight: 61.2 kg

DRUGS (2)
  1. LENALIDOMIDE [Suspect]
     Dosage: 5 MILLIGRAM
     Route: 048
     Dates: start: 20110516
  2. LENALIDOMIDE [Suspect]
     Dosage: 5 MILLIGRAM
     Route: 048
     Dates: start: 20110913, end: 20111010

REACTIONS (3)
  - CEREBRAL INFARCTION [None]
  - COUGH [None]
  - CIRCULATORY COLLAPSE [None]
